FAERS Safety Report 7650385-8 (Version None)
Quarter: 2011Q3

REPORT INFORMATION
  Report Type: 
  Country: None (occurrence: None)
  Receive Date: 20110721
  Receipt Date: 20101220
  Transmission Date: 20111222
  Serious: Yes (Other)
  Sender: FDA-Public Use
  Company Number: DSU-2010-07114

PATIENT
  Age: 47 Year
  Sex: Female

DRUGS (13)
  1. TRIAMTERENE (TRIAMTERENE) (TRIAMTERENE) [Concomitant]
  2. CELEBREX (CELECOXIB) (TABLET) (CELECOXIB) [Concomitant]
  3. ATENOLOL [Concomitant]
  4. HYDROCHLOROTHIAZIDE [Concomitant]
  5. WELCHOL [Suspect]
     Indication: BLOOD CHOLESTEROL INCREASED
     Dosage: 3750 MG (1875 MG,BID),PER ORAL
     Route: 048
     Dates: start: 20101201, end: 20101202
  6. ZETIA [Concomitant]
  7. SAVELLA [Suspect]
     Indication: FIBROMYALGIA
     Dosage: SEE IMAGE
     Route: 048
     Dates: start: 20101107, end: 20101110
  8. SAVELLA [Suspect]
     Indication: FIBROMYALGIA
     Dosage: SEE IMAGE
     Route: 048
     Dates: start: 20101122, end: 20101204
  9. SAVELLA [Suspect]
     Indication: FIBROMYALGIA
     Dosage: SEE IMAGE
     Route: 048
     Dates: start: 20101105, end: 20101106
  10. SAVELLA [Suspect]
     Indication: FIBROMYALGIA
     Dosage: SEE IMAGE
     Route: 048
     Dates: start: 20101111, end: 20101121
  11. SAVELLA [Suspect]
     Indication: FIBROMYALGIA
     Dosage: SEE IMAGE
     Route: 048
     Dates: start: 20101104, end: 20101104
  12. CYMBALTA (DULOXETINE HYDROCHLORIDE) (TABLET) (DULOXETINE HYDROCHLORIDE [Concomitant]
  13. WELLBUTRIN XL (BUPROPION HYDROCHLORIDE) (TABLET) (BUPROPION HYDROCHLOR [Concomitant]

REACTIONS (1)
  - HYPERSENSITIVITY [None]
